FAERS Safety Report 9716944 (Version 2)
Quarter: 2015Q3

REPORT INFORMATION
  Report Type: Spontaneous
  Country: US (occurrence: US)
  Receive Date: 20131127
  Receipt Date: 20150803
  Transmission Date: 20151125
  Serious: No
  Sender: FDA-Public Use
  Company Number: US-GILEAD-2009-0020029

PATIENT
  Age: 45 Year
  Sex: Female
  Weight: 69.85 kg

DRUGS (11)
  1. TIAZAC [Concomitant]
     Active Substance: DILTIAZEM HYDROCHLORIDE
  2. ERGOCALCIFEROL/NICOTINAMIDE/RETINOL/ASCORBIC ACID/FOLIC ACID/PANTHENOL/RIBOFLAVIN/THIAMINE HYDROCHLO [Concomitant]
  3. WARFARIN [Concomitant]
     Active Substance: WARFARIN
  4. DIAZEPAM. [Concomitant]
     Active Substance: DIAZEPAM
  5. EFFEXOR [Concomitant]
     Active Substance: VENLAFAXINE HYDROCHLORIDE
  6. REVATIO [Concomitant]
     Active Substance: SILDENAFIL CITRATE
  7. DOXEPIN [Concomitant]
     Active Substance: DOXEPIN
  8. CALCIUM [Concomitant]
     Active Substance: CALCIUM
  9. SPIRONOLACTONE. [Concomitant]
     Active Substance: SPIRONOLACTONE
  10. MAGNESIUM [Concomitant]
     Active Substance: MAGNESIUM
  11. LETAIRIS [Suspect]
     Active Substance: AMBRISENTAN
     Indication: PULMONARY ARTERIAL HYPERTENSION
     Route: 048
     Dates: start: 20081222

REACTIONS (4)
  - Paraesthesia [Unknown]
  - Asthenia [Unknown]
  - Dizziness [Unknown]
  - Paraesthesia oral [Unknown]
